FAERS Safety Report 21528911 (Version 1)
Quarter: 2022Q4

REPORT INFORMATION
  Report Type: Spontaneous
  Country: US (occurrence: US)
  Receive Date: 20221031
  Receipt Date: 20221031
  Transmission Date: 20230113
  Serious: Yes (Hospitalization)
  Sender: FDA-Public Use
  Company Number: US-SANOFI-01137622

PATIENT
  Age: 40 Year
  Sex: Male

DRUGS (9)
  1. DUPILUMAB [Suspect]
     Active Substance: DUPILUMAB
     Indication: Dermatitis atopic
     Dosage: 600 MG
     Route: 058
     Dates: start: 201907, end: 201908
  2. DUPILUMAB [Suspect]
     Active Substance: DUPILUMAB
     Dosage: 300 MG (14-DAY INTERVALS IN EARLY AND MID-AUGUST)
     Route: 058
     Dates: start: 201908, end: 2019
  3. PREDNISOLONE [Suspect]
     Active Substance: PREDNISOLONE
     Indication: Dermatitis atopic
     Dosage: 50 MG, Q3D (INTERMITTENT STEROID THERAPY)
     Route: 048
     Dates: start: 2017, end: 201907
  4. PREDNISOLONE [Suspect]
     Active Substance: PREDNISOLONE
     Dosage: DOWNWARD TAPERING
     Route: 048
     Dates: start: 201907, end: 201907
  5. PREDNISOLONE [Suspect]
     Active Substance: PREDNISOLONE
     Dosage: 25 MG (GRADUAL DOWNWARD TAPERING OF THE DOSE)
     Route: 040
     Dates: start: 2019
  6. PREDNISOLONE [Suspect]
     Active Substance: PREDNISOLONE
     Dosage: 20 MG (GRADUAL DOWNWARD TAPERING OF THE DOSE)
     Route: 040
     Dates: start: 2019
  7. PREDNISOLONE [Suspect]
     Active Substance: PREDNISOLONE
     Dosage: 15 MG (GRADUAL DOWNWARD TAPERING OF THE DOSE)
     Route: 040
     Dates: start: 2019
  8. PREDNISOLONE [Suspect]
     Active Substance: PREDNISOLONE
     Dosage: 10 MG (GRADUAL DOWNWARD TAPERING OF THE DOSE)
     Route: 040
     Dates: start: 2019
  9. PREDNISOLONE [Suspect]
     Active Substance: PREDNISOLONE
     Dosage: 5 MG, QD (GRADUAL DOWNWARD TAPERING OF THE DOSE)
     Route: 040
     Dates: start: 2019

REACTIONS (16)
  - Psoriasis [Recovering/Resolving]
  - Skin lesion [Recovering/Resolving]
  - Rash erythematous [Recovering/Resolving]
  - Skin plaque [Recovering/Resolving]
  - Skin exfoliation [Recovering/Resolving]
  - Abnormal palmar/plantar creases [Recovering/Resolving]
  - Leukocytosis [Recovering/Resolving]
  - Neutrophilia [Recovering/Resolving]
  - Eosinophilia [Recovering/Resolving]
  - Acanthosis [Recovering/Resolving]
  - Papilloma [Recovering/Resolving]
  - Parakeratosis [Recovering/Resolving]
  - Skin oedema [Recovering/Resolving]
  - Arterial disorder [Recovering/Resolving]
  - Lymphocytic infiltration [Recovering/Resolving]
  - Treatment noncompliance [Unknown]

NARRATIVE: CASE EVENT DATE: 20190701
